FAERS Safety Report 5417231-4 (Version None)
Quarter: 2007Q3

REPORT INFORMATION
  Report Type: 
  Country: None (occurrence: None)
  Receive Date: 20070816
  Receipt Date: 20070815
  Transmission Date: 20080115
  Serious: Yes (Death)
  Sender: FDA-Public Use
  Company Number: US-SHR-US-2007-005617

PATIENT
  Age: 30 Year
  Sex: Female
  Weight: 49.887 kg

DRUGS (47)
  1. MAGNEVIST [Suspect]
     Indication: NUCLEAR MAGNETIC RESONANCE IMAGING
     Dosage: 10 ML, 1 DOSE
     Route: 042
     Dates: start: 20030303, end: 20030303
  2. MAGNEVIST [Suspect]
     Dosage: 20 OR 40 ML
     Route: 042
     Dates: start: 20030307, end: 20030307
  3. MAGNEVIST [Suspect]
     Dosage: 20 ML, 1 DOSE
     Route: 042
     Dates: start: 20030315, end: 20030315
  4. MAGNEVIST [Suspect]
     Dosage: 20-60 ML
     Route: 042
     Dates: start: 20030320, end: 20030320
  5. MAGNEVIST [Suspect]
     Dosage: 40 ML, 1 DOSE
     Route: 042
     Dates: start: 20030807, end: 20030807
  6. COUMADIN [Concomitant]
     Indication: FACTOR V LEIDEN MUTATION
     Route: 048
     Dates: end: 20040101
  7. ASPIRIN [Concomitant]
  8. NEPHROCAPS [Concomitant]
  9. RENAGEL [Concomitant]
  10. PHOSLO [Concomitant]
  11. CALCITRIOL [Concomitant]
     Dosage: .5 UNK, 1X/DAY
     Route: 048
  12. CALCIUM CARBONATE [Concomitant]
  13. ZANTAC 150 [Concomitant]
  14. CELEXA [Concomitant]
     Dosage: 20 MG, 1X/DAY
     Route: 048
  15. CALCIUM ACETATE [Concomitant]
  16. METHIMAZOLE [Concomitant]
     Dates: start: 20060101
  17. TOPROL-XL [Concomitant]
  18. VICODIN [Concomitant]
  19. WELLBUTRIN [Concomitant]
  20. PEPCID [Concomitant]
  21. MIDODRINE [Concomitant]
  22. COLACE [Concomitant]
  23. TYLENOL (CAPLET) [Concomitant]
  24. ARANESP [Concomitant]
  25. POLYETHYLENE GLYCOL [Concomitant]
  26. ATENOLOL [Concomitant]
  27. PROTONIX [Concomitant]
  28. LEXAPRO [Concomitant]
  29. MEGACE [Concomitant]
  30. TAPAZOLE [Concomitant]
  31. HEPARIN [Concomitant]
  32. REGLAN [Concomitant]
  33. DILAUDID [Concomitant]
  34. ATIVAN [Concomitant]
  35. EPOGEN [Concomitant]
     Dosage: 20000 UNITS T/TH
     Route: 058
  36. IRON [Concomitant]
     Dosage: 650 MG, BED T.
     Route: 048
  37. PREDNISONE TAB [Concomitant]
     Dosage: 15 MG, Q AM
     Route: 048
  38. SODIUM BICARBONATE [Concomitant]
     Dosage: 1300 MG, 3X/DAY
  39. LOVENOX [Concomitant]
     Dosage: 60 MG, 1X/DAY
     Route: 058
  40. BACTRIM [Concomitant]
     Dosage: 1 TAB(S), QOD
     Route: 048
  41. CELLCEPT [Concomitant]
     Dosage: 500 MG, EVERY 6H
     Route: 048
  42. VALTREX [Concomitant]
     Dosage: 500 MG, 1X/DAY
     Route: 048
  43. TUMS [Concomitant]
     Dosage: 1000 MG, 3X/DAY
     Route: 048
  44. RED BLOOD CELLS [Concomitant]
     Dosage: 2 UNITS, UNK
     Route: 042
     Dates: start: 20040406, end: 20040406
  45. RED BLOOD CELLS [Concomitant]
     Dosage: 2 UNITS, UNK
     Route: 042
     Dates: start: 20040420, end: 20040420
  46. RED BLOOD CELLS [Concomitant]
     Dosage: 4 UNITS, UNK
     Route: 042
     Dates: start: 20040427, end: 20040427
  47. CALCITRIOL [Concomitant]
     Dosage: .5 A?G, 1X/DAY
     Route: 048

REACTIONS (1)
  - NEPHROGENIC SYSTEMIC FIBROSIS [None]
